FAERS Safety Report 19079080 (Version 2)
Quarter: 2021Q2

REPORT INFORMATION
  Report Type: Spontaneous
  Country: GB (occurrence: GB)
  Receive Date: 20210331
  Receipt Date: 20210526
  Transmission Date: 20210717
  Serious: Yes (Other)
  Sender: FDA-Public Use
  Company Number: GB-ALLERGAN-2112961US

PATIENT
  Sex: Female

DRUGS (4)
  1. IMRALDI [Suspect]
     Active Substance: ADALIMUMAB
     Indication: COLITIS ULCERATIVE
     Dosage: 80 MG AT WEEK TWO
     Route: 058
     Dates: end: 20210513
  2. IMRALDI [Suspect]
     Active Substance: ADALIMUMAB
     Dosage: 160 MG AT WEEK ZERO
     Route: 058
     Dates: start: 20210302
  3. PREDNISOLONE UNK [Suspect]
     Active Substance: PREDNISOLONE
     Indication: PRODUCT USED FOR UNKNOWN INDICATION
     Dosage: UNKNOWN
     Route: 065
  4. IMRALDI [Suspect]
     Active Substance: ADALIMUMAB
     Dosage: 40 MG FORTNIGHTLY
     Route: 058

REACTIONS (8)
  - Vomiting [Unknown]
  - Paraesthesia [Unknown]
  - Somnolence [Unknown]
  - Nausea [Unknown]
  - Drug hypersensitivity [Unknown]
  - Fatigue [Unknown]
  - Ill-defined disorder [Unknown]
  - Feeling cold [Unknown]

NARRATIVE: CASE EVENT DATE: 20210316
